FAERS Safety Report 18121606 (Version 11)
Quarter: 2022Q4

REPORT INFORMATION
  Report Type: Report from Study
  Country: US (occurrence: US)
  Receive Date: 20200807
  Receipt Date: 20221124
  Transmission Date: 20230113
  Serious: No
  Sender: FDA-Public Use
  Company Number: NVSC2020US214499

PATIENT
  Age: 3 Year
  Sex: Female

DRUGS (8)
  1. ILARIS [Suspect]
     Active Substance: CANAKINUMAB
     Indication: Pyrexia
     Dosage: 150 MG/KG, QMO
     Route: 058
  2. ILARIS [Suspect]
     Active Substance: CANAKINUMAB
     Dosage: 30 MG (EVERY 4 WEEKS)
     Route: 058
     Dates: start: 2018
  3. ILARIS [Suspect]
     Active Substance: CANAKINUMAB
     Dosage: 45 MG, QMO
     Route: 058
     Dates: start: 201812
  4. ILARIS [Suspect]
     Active Substance: CANAKINUMAB
     Dosage: 45 MG (EVERY 4 WEEKS)
     Route: 058
     Dates: start: 20200310
  5. ILARIS [Suspect]
     Active Substance: CANAKINUMAB
     Dosage: 30 MG, QOD
     Route: 058
     Dates: start: 20200509
  6. ILARIS [Suspect]
     Active Substance: CANAKINUMAB
     Dosage: 30 MG, QMO
     Route: 058
     Dates: start: 20200509
  7. ILARIS [Suspect]
     Active Substance: CANAKINUMAB
     Dosage: 30 MG, QMO
     Route: 058
     Dates: start: 20200510
  8. ILARIS [Suspect]
     Active Substance: CANAKINUMAB
     Dosage: 45 MG, QMO
     Route: 058
     Dates: start: 20200510

REACTIONS (7)
  - Coronavirus infection [Unknown]
  - Illness [Unknown]
  - Diarrhoea [Unknown]
  - Abdominal pain upper [Unknown]
  - Vomiting [Unknown]
  - Pyrexia [Unknown]
  - Incorrect dose administered [Unknown]

NARRATIVE: CASE EVENT DATE: 20200701
